FAERS Safety Report 15410415 (Version 6)
Quarter: 2018Q4

REPORT INFORMATION
  Report Type: Report from Study
  Country: CA (occurrence: CA)
  Receive Date: 20180921
  Receipt Date: 20181112
  Transmission Date: 20190204
  Serious: Yes (Hospitalization, Other)
  Sender: FDA-Public Use
  Company Number: CA-BRISTOL-MYERS SQUIBB COMPANY-BMS-2018-070272

PATIENT
  Age: 70 Year
  Sex: Female

DRUGS (4)
  1. YERVOY [Suspect]
     Active Substance: IPILIMUMAB
     Indication: RENAL CELL CARCINOMA
     Dosage: 1 MG/KG, Q3WK
     Route: 042
     Dates: start: 20180713
  2. ASA [Concomitant]
     Active Substance: ASPIRIN
     Indication: PAIN
     Dosage: UNK, PRN
     Route: 065
  3. NIVOLUMAB [Suspect]
     Active Substance: NIVOLUMAB
     Indication: RENAL CELL CARCINOMA
     Dosage: 156 MG, Q2WK
     Route: 042
     Dates: start: 20180713
  4. NIVOLUMAB [Suspect]
     Active Substance: NIVOLUMAB
     Indication: PRODUCT USED FOR UNKNOWN INDICATION
     Dosage: 3 MG/KG, Q2WK
     Route: 042
     Dates: start: 20181005

REACTIONS (31)
  - Fatigue [Unknown]
  - Product use in unapproved indication [Unknown]
  - Sciatica [Unknown]
  - Neck pain [Unknown]
  - Blood test abnormal [Unknown]
  - Nausea [Recovering/Resolving]
  - Anxiety [Unknown]
  - Muscle spasms [Recovering/Resolving]
  - Tremor [Not Recovered/Not Resolved]
  - Decreased appetite [Unknown]
  - Dry skin [Unknown]
  - Rash [Not Recovered/Not Resolved]
  - Memory impairment [Unknown]
  - Weight decreased [Unknown]
  - Dyspnoea exertional [Recovering/Resolving]
  - Abdominal pain upper [Unknown]
  - Erythema [Recovering/Resolving]
  - Cough [Unknown]
  - Dry mouth [Unknown]
  - Headache [Recovering/Resolving]
  - Depression [Unknown]
  - Back pain [Not Recovered/Not Resolved]
  - Syncope [Not Recovered/Not Resolved]
  - Asthenia [Recovering/Resolving]
  - Diarrhoea [Recovered/Resolved]
  - Pruritus [Not Recovered/Not Resolved]
  - Haemoptysis [Unknown]
  - Pruritus generalised [Unknown]
  - Gastrointestinal haemorrhage [Recovered/Resolved]
  - Dizziness [Recovering/Resolving]
  - Hypoaesthesia [Unknown]

NARRATIVE: CASE EVENT DATE: 20180713
